FAERS Safety Report 16419295 (Version 1)
Quarter: 2019Q2

REPORT INFORMATION
  Report Type: Spontaneous
  Country: US (occurrence: US)
  Receive Date: 20190612
  Receipt Date: 20190612
  Transmission Date: 20190711
  Serious: No
  Sender: FDA-Public Use
  Company Number: US-ASTRAZENECA-2019SE75215

PATIENT
  Sex: Female
  Weight: 68 kg

DRUGS (2)
  1. SYMBICORT [Suspect]
     Active Substance: BUDESONIDE\FORMOTEROL FUMARATE DIHYDRATE
     Indication: ASTHMA
     Dosage: 160/4.5,2 PUFFS IN THE MORNING AND 2 PUFFS IN THE EVENING
     Route: 055
  2. MONTELUKAST [Concomitant]
     Active Substance: MONTELUKAST SODIUM
     Indication: HYPERSENSITIVITY
     Dosage: 10.0MG AS REQUIRED
     Route: 048

REACTIONS (12)
  - Tongue disorder [Unknown]
  - Sleep disorder due to general medical condition, insomnia type [Unknown]
  - Throat irritation [Unknown]
  - Dysphonia [Unknown]
  - Abdominal discomfort [Unknown]
  - Thyroid disorder [Unknown]
  - Headache [Unknown]
  - Heart rate increased [Unknown]
  - Oral candidiasis [Unknown]
  - Wheezing [Unknown]
  - Nausea [Unknown]
  - Intentional product misuse [Unknown]
